FAERS Safety Report 25218158 (Version 1)
Quarter: 2025Q2

REPORT INFORMATION
  Report Type: Spontaneous
  Country: US (occurrence: US)
  Receive Date: 20250421
  Receipt Date: 20250421
  Transmission Date: 20250717
  Serious: Yes (Hospitalization, Other)
  Sender: AMGEN
  Company Number: US-AMGEN-USASP2025075156

PATIENT
  Age: 54 Year
  Sex: Male

DRUGS (10)
  1. AMJEVITA [Suspect]
     Active Substance: ADALIMUMAB-ATTO
     Indication: Psoriasis
     Dosage: 40 MILLIGRAM PER 0.4 MILLILITRE, Q2WK
     Route: 065
     Dates: start: 202501
  2. AMJEVITA [Suspect]
     Active Substance: ADALIMUMAB-ATTO
     Indication: Psoriatic arthropathy
  3. OPSUMIT [Concomitant]
     Active Substance: MACITENTAN
     Route: 065
  4. TORSEMIDE [Concomitant]
     Active Substance: TORSEMIDE
     Dosage: 80 MILLIGRAM, BID
     Route: 065
  5. SPIRONOLACTONE [Concomitant]
     Active Substance: SPIRONOLACTONE
     Route: 065
  6. OMEPRAZOLE [Concomitant]
     Active Substance: OMEPRAZOLE
     Route: 065
  7. PEPCID [Concomitant]
     Active Substance: FAMOTIDINE
     Route: 065
  8. ATORVASTATIN [Concomitant]
     Active Substance: ATORVASTATIN
     Route: 065
  9. RIFAMPIN [Concomitant]
     Active Substance: RIFAMPIN
     Route: 065
  10. OXYGEN [Concomitant]
     Active Substance: OXYGEN
     Route: 065

REACTIONS (6)
  - Pulmonary arterial pressure increased [Unknown]
  - Atrial fibrillation [Unknown]
  - Graves^ disease [Unknown]
  - Pulmonary oedema [Unknown]
  - Polyuria [Unknown]
  - Adverse reaction [Unknown]

NARRATIVE: CASE EVENT DATE: 20250329
